FAERS Safety Report 7035550-5 (Version None)
Quarter: 2010Q4

REPORT INFORMATION
  Report Type: 
  Country: None (occurrence: None)
  Receive Date: 20101007
  Receipt Date: 20101007
  Transmission Date: 20110411
  Serious: Yes (Hospitalization)
  Sender: FDA-Public Use
  Company Number: None

PATIENT
  Sex: Male
  Weight: 66 kg

DRUGS (1)
  1. SAPHRIS [Suspect]
     Indication: DELUSIONAL DISORDER, UNSPECIFIED TYPE
     Dosage: 10MG BID PO
     Route: 048
     Dates: start: 20100921, end: 20101003

REACTIONS (9)
  - CONJUNCTIVITIS [None]
  - ERYTHEMA [None]
  - LIP DISORDER [None]
  - ORAL DISORDER [None]
  - PRURITUS [None]
  - RASH ERYTHEMATOUS [None]
  - SCAB [None]
  - SCRATCH [None]
  - TONGUE DISORDER [None]
